FAERS Safety Report 6273464-9 (Version None)
Quarter: 2009Q3

REPORT INFORMATION
  Report Type: 
  Country: None (occurrence: None)
  Receive Date: 20090713
  Receipt Date: 20081218
  Transmission Date: 20100115
  Serious: Yes (Other)
  Sender: FDA-Public Use
  Company Number: 603720

PATIENT
  Age: 67 Year
  Sex: Female

DRUGS (10)
  1. BONIVA [Suspect]
     Indication: OSTEOPENIA
     Dosage: 150 MG  1 PER MONTH  ORAL
     Route: 048
     Dates: start: 20080701, end: 20081112
  2. LIPITOR [Concomitant]
  3. COREG [Concomitant]
  4. HYDROCHLOROTHIAZIDE [Concomitant]
  5. TRAMADOL HCL [Concomitant]
  6. ASPIRIN [Concomitant]
  7. CALCIUM [Concomitant]
  8. MULTIVITAMIN NOS [Concomitant]
  9. AZITHROMYCIN [Concomitant]
  10. ANTIBIOTIC NOS [Concomitant]

REACTIONS (2)
  - CLOSTRIDIAL INFECTION [None]
  - TOOTH INFECTION [None]
